FAERS Safety Report 5259464-6 (Version None)
Quarter: 2007Q1

REPORT INFORMATION
  Report Type: 
  Country: None (occurrence: None)
  Receive Date: 20070305
  Receipt Date: 20070220
  Transmission Date: 20070707
  Serious: Yes (Hospitalization)
  Sender: FDA-Public Use
  Company Number: 011089

PATIENT
  Age: 33 Year
  Sex: Female
  Weight: 71.7 kg

DRUGS (4)
  1. CLARAVIS [Suspect]
     Indication: ACNE
     Dosage: 40 MG, QD, ORAL, 80 MG, QD, ORAL
     Route: 048
     Dates: start: 20060701, end: 20060901
  2. CLARAVIS [Suspect]
     Indication: ACNE
     Dosage: 40 MG, QD, ORAL, 80 MG, QD, ORAL
     Route: 048
     Dates: start: 20060901
  3. ZOLOFT [Concomitant]
  4. TOPAMAX [Concomitant]

REACTIONS (1)
  - ASTHMA [None]
